FAERS Safety Report 7028430-2 (Version None)
Quarter: 2010Q4

REPORT INFORMATION
  Report Type: 
  Country: None (occurrence: None)
  Receive Date: 20101005
  Receipt Date: 20100927
  Transmission Date: 20110411
  Serious: Yes (Other)
  Sender: FDA-Public Use
  Company Number: US-ROCHE-729855

PATIENT

DRUGS (2)
  1. BEVACIZUMAB [Suspect]
     Indication: OVARIAN CANCER
     Dosage: ON DAY 1 OF 21 DAYS CYCLE
     Route: 065
  2. DOCETAXEL [Suspect]
     Indication: OVARIAN CANCER
     Dosage: ON DAYS 1 AND 8 OF A 21 DAYS CYCLE
     Route: 065

REACTIONS (9)
  - DECREASED APPETITE [None]
  - DEEP VEIN THROMBOSIS [None]
  - FATIGUE [None]
  - GASTROINTESTINAL PERFORATION [None]
  - INFECTION [None]
  - LEUKOPENIA [None]
  - NEUTROPENIA [None]
  - RASH [None]
  - UROGENITAL FISTULA [None]
